FAERS Safety Report 5239694-X (Version None)
Quarter: 2007Q1

REPORT INFORMATION
  Report Type: 
  Country: None (occurrence: None)
  Receive Date: 20070216
  Receipt Date: 20070213
  Transmission Date: 20070707
  Serious: Yes (Death, Hospitalization)
  Sender: FDA-Public Use
  Company Number: CA-SANOFI-SYNTHELABO-F01200700186

PATIENT
  Sex: Male

DRUGS (15)
  1. ZOFRAN [Concomitant]
     Route: 065
     Dates: start: 20051025
  2. MORPHINE [Concomitant]
     Route: 065
     Dates: start: 20051025
  3. RITALIN [Concomitant]
     Route: 065
     Dates: start: 20060112
  4. IMOVANE [Concomitant]
     Route: 065
     Dates: start: 20050204
  5. LORAZEPAM [Concomitant]
     Route: 065
     Dates: start: 20051206
  6. CELEXA [Concomitant]
     Route: 065
     Dates: start: 20051220
  7. MS CONTIN [Concomitant]
     Route: 065
     Dates: start: 20051025
  8. PANTOPRAZOLE SODIUM [Concomitant]
     Route: 065
     Dates: start: 20050615
  9. SANDOSTATIN [Concomitant]
     Route: 065
     Dates: start: 20060116
  10. MOUTHWASH NOS [Concomitant]
     Route: 065
     Dates: start: 20060206
  11. FLUOROURACIL [Suspect]
     Dosage: 2400 MG
     Route: 042
     Dates: start: 20060125, end: 20060126
  12. IRINOTECAN [Suspect]
     Route: 042
     Dates: start: 20060103, end: 20060103
  13. BEVACIZUMAB [Suspect]
     Route: 042
     Dates: start: 20060103, end: 20060103
  14. LEUCOVORIN CALCIUM [Suspect]
     Dosage: 700 MG
     Route: 042
     Dates: start: 20060124, end: 20060125
  15. OXALIPLATIN [Suspect]
     Indication: COLORECTAL CANCER
     Dosage: 150 MG
     Route: 042
     Dates: start: 20060124, end: 20060124

REACTIONS (1)
  - DEHYDRATION [None]
